FAERS Safety Report 18015114 (Version 1)
Quarter: 2020Q3

REPORT INFORMATION
  Report Type: Spontaneous
  Country: US (occurrence: US)
  Receive Date: 20200713
  Receipt Date: 20200713
  Transmission Date: 20201103
  Serious: Yes (Other)
  Sender: FDA-Public Use
  Company Number: US-FOUNDATIONCONSUMERHC-2020-US-011966

PATIENT
  Age: 28 Year
  Sex: Female
  Weight: 136.99 kg

DRUGS (3)
  1. ADVIL [Concomitant]
     Active Substance: IBUPROFEN
     Dosage: AS NEEDED
  2. TYLENOL [Concomitant]
     Active Substance: ACETAMINOPHEN
     Dosage: AS NEEDED
  3. TAKE ACTION [Suspect]
     Active Substance: LEVONORGESTREL
     Indication: POST COITAL CONTRACEPTION
     Dosage: 1.5MG X2 DOSES LAST WEEK
     Route: 048
     Dates: start: 20200601, end: 20200606

REACTIONS (3)
  - Drug ineffective [Unknown]
  - Exposure during pregnancy [Recovered/Resolved]
  - Pregnancy after post coital contraception [Not Recovered/Not Resolved]

NARRATIVE: CASE EVENT DATE: 20200601
